FAERS Safety Report 5356722-1 (Version None)
Quarter: 2007Q2

REPORT INFORMATION
  Report Type: 
  Country: None (occurrence: None)
  Receive Date: 20070614
  Receipt Date: 20070611
  Transmission Date: 20071010
  Serious: Yes (Other)
  Sender: FDA-Public Use
  Company Number: US-RB-006667-07

PATIENT
  Age: 37 Year
  Sex: Female

DRUGS (3)
  1. SUBOXONE [Suspect]
     Indication: DRUG DEPENDENCE
     Route: 060
     Dates: start: 20070529, end: 20070601
  2. SUBOXONE [Suspect]
     Route: 060
     Dates: start: 20070602
  3. BIRTH CONTROL PILLS [Concomitant]
     Indication: CONTRACEPTION
     Dosage: DOSAGE UNKNOWN
     Route: 048

REACTIONS (2)
  - OVERDOSE [None]
  - TINNITUS [None]
